FAERS Safety Report 4486054-5 (Version None)
Quarter: 2004Q4

REPORT INFORMATION
  Report Type: 
  Country: None (occurrence: None)
  Receive Date: 20041021
  Receipt Date: 20041006
  Transmission Date: 20050328
  Serious: Yes (Other)
  Sender: FDA-Public Use
  Company Number: 2004060768

PATIENT
  Age: 73 Year
  Sex: Male
  Weight: 70 kg

DRUGS (6)
  1. LIPITOR [Suspect]
     Indication: ILL-DEFINED DISORDER
     Dosage: 90 MG (1 IN 1 D)
     Dates: start: 19990323
  2. ASASANTIN (ACETYLSALICYLIC ACID, DIPYRIDAMOLE) [Concomitant]
  3. TIMOLOL MALEATE [Concomitant]
  4. LATANOPROST [Concomitant]
  5. DILTIAZEM HYDROCHLORIDE [Concomitant]
  6. FEFOL (FERROUS SULFATE EXSICCATED, FOLIC ACID) [Concomitant]

REACTIONS (5)
  - AORTIC ANEURYSM [None]
  - AORTIC THROMBOSIS [None]
  - RENAL CYST [None]
  - VASCULAR CALCIFICATION [None]
  - VASODILATATION [None]
